FAERS Safety Report 8073913-X (Version None)
Quarter: 2011Q4

REPORT INFORMATION
  Report Type: 
  Country: None (occurrence: None)
  Receive Date: 20111221
  Receipt Date: 20110503
  Transmission Date: 20120403
  Serious: Yes (Hospitalization)
  Sender: FDA-Public Use
  Company Number: PHHY2011US27666

PATIENT
  Age: 44 Year
  Sex: Male
  Weight: 62.7 kg

DRUGS (13)
  1. HYDROXYUREA [Concomitant]
  2. PRILOSEC [Concomitant]
  3. HYDREA [Concomitant]
  4. MS CONTIN [Concomitant]
  5. MS CONTIN [Concomitant]
  6. ALLOPURINOL [Concomitant]
  7. EXJADE [Suspect]
     Indication: IRON OVERLOAD
     Dosage: 2000 MG, QD, ORAL ; 1200 MG, QD, ORAL
     Route: 048
  8. INDERAL [Concomitant]
  9. POTASSIUM CHLORIDE [Concomitant]
  10. FOLIC ACID [Concomitant]
  11. BUMEX [Concomitant]
  12. MS IIZ (MS IIZ) [Concomitant]
  13. POTASSIUM CHLORIDE [Concomitant]

REACTIONS (3)
  - FATIGUE [None]
  - SICKLE CELL ANAEMIA WITH CRISIS [None]
  - PAIN [None]
